FAERS Safety Report 24685284 (Version 1)
Quarter: 2024Q4

REPORT INFORMATION
  Report Type: Spontaneous
  Country: US (occurrence: US)
  Receive Date: 20241202
  Receipt Date: 20241202
  Transmission Date: 20250115
  Serious: Yes (Life-Threatening)
  Sender: MYLAN
  Company Number: US-MYLANLABS-2024M1106496

PATIENT
  Sex: Male

DRUGS (1)
  1. NITROGLYCERIN [Suspect]
     Active Substance: NITROGLYCERIN
     Indication: Chest discomfort
     Dosage: 0.4 MILLIGRAM
     Route: 060

REACTIONS (4)
  - Overdose [Unknown]
  - Malaise [Unknown]
  - Hypotension [Unknown]
  - Hyperhidrosis [Unknown]
